FAERS Safety Report 9044938 (Version 1)
Quarter: 2013Q1

REPORT INFORMATION
  Report Type: Spontaneous
  Country: JP (occurrence: JP)
  Receive Date: 20130130
  Receipt Date: 20130130
  Transmission Date: 20140127
  Serious: Yes (Other)
  Sender: FDA-Public Use
  Company Number: JP-GLAXOSMITHKLINE-B0863033A

PATIENT
  Age: 5 Decade
  Sex: Female

DRUGS (2)
  1. LAMICTAL [Suspect]
     Indication: BIPOLAR I DISORDER
     Dosage: 25MG ALTERNATE DAYS
     Route: 048
  2. DEPAKENE [Concomitant]
     Indication: BIPOLAR I DISORDER
     Route: 048

REACTIONS (2)
  - Toxic skin eruption [Unknown]
  - Oral mucosa erosion [Unknown]
